FAERS Safety Report 7476332-X (Version None)
Quarter: 2011Q2

REPORT INFORMATION
  Report Type: 
  Country: None (occurrence: None)
  Receive Date: 20110512
  Receipt Date: 20080205
  Transmission Date: 20111010
  Serious: Yes (Other)
  Sender: FDA-Public Use
  Company Number: A0707827A

PATIENT
  Age: 36 Year
  Sex: Male

DRUGS (1)
  1. PAXIL [Suspect]
     Indication: GENERALISED ANXIETY DISORDER
     Dosage: 40MG PER DAY
     Route: 048
     Dates: start: 19950101, end: 20110101

REACTIONS (13)
  - DRUG EFFECT DECREASED [None]
  - ANGER [None]
  - INSOMNIA [None]
  - SELF ESTEEM DECREASED [None]
  - ACNE [None]
  - TREMOR [None]
  - DEPENDENCE [None]
  - TINNITUS [None]
  - DISORIENTATION [None]
  - RECTAL HAEMORRHAGE [None]
  - DEPRESSED MOOD [None]
  - OCULAR DISCOMFORT [None]
  - WITHDRAWAL SYNDROME [None]
